FAERS Safety Report 4363834-8 (Version None)
Quarter: 2004Q2

REPORT INFORMATION
  Report Type: 
  Country: None (occurrence: None)
  Receive Date: 20040521
  Receipt Date: 20040422
  Transmission Date: 20050107
  Serious: Yes (Life-Threatening, Hospitalization)
  Sender: FDA-Public Use
  Company Number: 2003-00869

PATIENT
  Age: 56 Year
  Sex: Male

DRUGS (1)
  1. IMMUCYST (BCG - IT (CONNAUGHT) , AVENTIS PASTEUR LTD., LOT NOT REP, 17 [Suspect]
     Dosage: B.IN., BLADDER
     Dates: start: 20030428

REACTIONS (4)
  - BOVINE TUBERCULOSIS [None]
  - HAEMATURIA [None]
  - PROSTATITIS [None]
  - WEIGHT DECREASED [None]
